FAERS Safety Report 12162360 (Version 3)
Quarter: 2017Q3

REPORT INFORMATION
  Report Type: Spontaneous
  Country: US (occurrence: US)
  Receive Date: 20160309
  Receipt Date: 20170906
  Transmission Date: 20171127
  Serious: Yes (Life-Threatening, Hospitalization, Other)
  Sender: FDA-Public Use
  Company Number: PHHY2014US175372

PATIENT
  Age: 24 Month
  Sex: Female

DRUGS (2)
  1. ONDANSETRON [Suspect]
     Active Substance: ONDANSETRON
     Indication: PRODUCT USED FOR UNKNOWN INDICATION
     Dosage: 8MG ONDANSETRON ODT TABLETS (DOSE 3.56MG/KG, RECOMMENDED DOSE 0.1-0.15MG/KG
     Route: 048
  2. ONDANSETRON [Suspect]
     Active Substance: ONDANSETRON
     Dosage: FOUR OPENED BLISTER PACKS OF 8MG ONDANSETRON (DOSE 3.56MG/KG, RECOMMENDED DOSE 0.1-0.15MG/KG)
     Route: 048

REACTIONS (18)
  - Seizure like phenomena [Recovered/Resolved]
  - Depressed level of consciousness [Recovering/Resolving]
  - Vomiting [Unknown]
  - Respiratory failure [Unknown]
  - Gait disturbance [Unknown]
  - Sinus tachycardia [Unknown]
  - Hypoxia [Recovered/Resolved]
  - Accidental overdose [Recovered/Resolved]
  - Toxicity to various agents [Unknown]
  - Generalised tonic-clonic seizure [Recovered/Resolved]
  - Electrocardiogram QT prolonged [Recovered/Resolved]
  - Myoclonus [Recovered/Resolved]
  - Hyporesponsive to stimuli [Recovered/Resolved]
  - Nystagmus [Unknown]
  - Tremor [Unknown]
  - Somnolence [Unknown]
  - Encephalopathy [Recovered/Resolved]
  - Sluggishness [Recovered/Resolved]
